FAERS Safety Report 9822622 (Version 2)
Quarter: 2015Q1

REPORT INFORMATION
  Report Type: Spontaneous
  Country: BR (occurrence: BR)
  Receive Date: 20140116
  Receipt Date: 20150225
  Transmission Date: 20150721
  Serious: Yes (Hospitalization)
  Sender: FDA-Public Use
  Company Number: BR-BIOGENIDEC-2014BI003576

PATIENT
  Age: 56 Year
  Sex: Male

DRUGS (8)
  1. TYSABRI [Suspect]
     Active Substance: NATALIZUMAB
     Indication: MULTIPLE SCLEROSIS
     Route: 042
     Dates: start: 20130620, end: 20131218
  2. CHLORPROMAZINE [Concomitant]
     Active Substance: CHLORPROMAZINE
  3. CLONAZEPAM. [Concomitant]
     Active Substance: CLONAZEPAM
  4. SORASEQ [Concomitant]
     Indication: RHINITIS
  5. VITAMIN D [Concomitant]
     Active Substance: CHOLECALCIFEROL
  6. VALPROIC ACID. [Concomitant]
     Active Substance: VALPROIC ACID
  7. OLANZAPINE. [Concomitant]
     Active Substance: OLANZAPINE
     Indication: BIPOLAR DISORDER
  8. SORASEQ [Concomitant]
     Indication: BRONCHITIS

REACTIONS (11)
  - Drug ineffective [Unknown]
  - Amnesia [Unknown]
  - Asthenia [Unknown]
  - Urinary tract infection [Unknown]
  - Multiple sclerosis relapse [Recovered/Resolved]
  - Neurogenic bladder [Not Recovered/Not Resolved]
  - Constipation [Unknown]
  - Sepsis [Recovered/Resolved]
  - Bipolar disorder [Unknown]
  - Musculoskeletal stiffness [Not Recovered/Not Resolved]
  - Cognitive disorder [Unknown]

NARRATIVE: CASE EVENT DATE: 20131207
